FAERS Safety Report 6690317-2 (Version None)
Quarter: 2010Q2

REPORT INFORMATION
  Report Type: 
  Country: None (occurrence: None)
  Receive Date: 20100421
  Receipt Date: 20100416
  Transmission Date: 20101027
  Serious: Yes (Death, Other)
  Sender: FDA-Public Use
  Company Number: PHHY2010US24198

PATIENT
  Sex: Male

DRUGS (1)
  1. GLEEVEC [Suspect]
     Dosage: 400 MG DAILY
     Route: 048
     Dates: start: 20100312

REACTIONS (3)
  - CARDIAC ARREST [None]
  - DEATH [None]
  - GROIN PAIN [None]
